FAERS Safety Report 9868991 (Version 2)
Quarter: 2016Q2

REPORT INFORMATION
  Report Type: Report from Study
  Country: US (occurrence: US)
  Receive Date: 20140205
  Receipt Date: 20160425
  Transmission Date: 20160815
  Serious: Yes (Other)
  Sender: FDA-Public Use
  Company Number: US-ROCHE-1342874

PATIENT
  Sex: Male

DRUGS (7)
  1. TYLENOL [Concomitant]
     Active Substance: ACETAMINOPHEN
     Indication: ARTHRITIS
  2. LUCENTIS [Suspect]
     Active Substance: RANIBIZUMAB
     Indication: RETINAL OEDEMA
  3. ATEN [Concomitant]
     Indication: BLOOD PRESSURE MEASUREMENT
  4. LUCENTIS [Suspect]
     Active Substance: RANIBIZUMAB
     Indication: NEOVASCULAR AGE-RELATED MACULAR DEGENERATION
     Route: 065
  5. LIPITOR [Concomitant]
     Active Substance: ATORVASTATIN CALCIUM
  6. COUMADIN [Concomitant]
     Active Substance: WARFARIN SODIUM
     Indication: CEREBROVASCULAR ACCIDENT
  7. FOLIC ACID. [Concomitant]
     Active Substance: FOLIC ACID

REACTIONS (9)
  - Visual impairment [Unknown]
  - Cerebrovascular accident [Unknown]
  - Musculoskeletal stiffness [Recovering/Resolving]
  - Memory impairment [Unknown]
  - Balance disorder [Unknown]
  - Hip fracture [Unknown]
  - Hypertension [Unknown]
  - Hyperchlorhydria [Unknown]
  - Arthritis [Unknown]
